FAERS Safety Report 11618023 (Version 2)
Quarter: 2016Q3

REPORT INFORMATION
  Report Type: Report from Study
  Country: US (occurrence: US)
  Receive Date: 20151010
  Receipt Date: 20160816
  Transmission Date: 20161109
  Serious: No
  Sender: FDA-Public Use
  Company Number: PHEH2015US019433

PATIENT
  Sex: Male

DRUGS (3)
  1. ENTRESTO [Suspect]
     Active Substance: SACUBITRIL\VALSARTAN
     Indication: CARDIAC FAILURE CHRONIC
     Dosage: 50 MG, BID
     Route: 048
     Dates: start: 20150825
  2. ENTRESTO [Suspect]
     Active Substance: SACUBITRIL\VALSARTAN
     Dosage: MIDDLE DOSE
     Route: 065
  3. ENTRESTO [Suspect]
     Active Substance: SACUBITRIL\VALSARTAN
     Dosage: 50 MG (LOWER DOSE)
     Route: 065

REACTIONS (7)
  - Low density lipoprotein decreased [Unknown]
  - Dizziness postural [Unknown]
  - Fatigue [Unknown]
  - Weight decreased [Unknown]
  - Hypotension [Unknown]
  - Pollakiuria [Unknown]
  - Cough [Unknown]
